FAERS Safety Report 4622744-9 (Version None)
Quarter: 2005Q1

REPORT INFORMATION
  Report Type: 
  Country: None (occurrence: None)
  Receive Date: 20050329
  Receipt Date: 20050329
  Transmission Date: 20050727
  Serious: No
  Sender: FDA-Public Use
  Company Number: None

PATIENT
  Sex: Male
  Weight: 88 kg

DRUGS (7)
  1. ALLOPURINOL [Suspect]
     Dosage: 300 MG PO QD ON DAYS 1-14
     Route: 048
     Dates: start: 20050107
  2. CYCLOPHOSPHAMIDE [Suspect]
     Dosage: 1200 MG/M2 IV OVER 15-30 MIN ON DAY 1
     Route: 042
  3. DAUNORUBICIN HCL [Suspect]
     Dosage: 80 MG/M2/DAY X 3 DAYS IV ON DAYS 1,2,3.
     Route: 042
  4. VINCRISTINE [Suspect]
     Dosage: 2 MG IVP ON DAYS 1,8,15,22
     Route: 042
  5. DEXAMETHASONE [Suspect]
     Dosage: 5 MG/M2 PO BID ON DAYS 1-7 AND 15-21
     Route: 048
  6. ELSPAR [Suspect]
     Dosage: 6000 U/M2 SC/IM ON DAYS 5,8,11,15,18,22.
     Route: 058
  7. G-CSF [Suspect]
     Dosage: 5 MCG/KG/DAY SC STARTING DAY 4 X 7 DAYS AND CONTINUING UNTIL ANC IS } 5000 MCL PRN
     Route: 058

REACTIONS (16)
  - BLOOD BILIRUBIN INCREASED [None]
  - CAECITIS [None]
  - COMA [None]
  - COORDINATION ABNORMAL [None]
  - DYSARTHRIA [None]
  - ENTEROCOCCAL BACTERAEMIA [None]
  - FALL [None]
  - FEBRILE NEUTROPENIA [None]
  - HEPATIC FUNCTION ABNORMAL [None]
  - LIVER FUNCTION TEST ABNORMAL [None]
  - MUCOSAL INFLAMMATION [None]
  - NEUROTOXICITY [None]
  - POST PROCEDURAL COMPLICATION [None]
  - RENAL FAILURE [None]
  - SEPSIS [None]
  - SUBDURAL HAEMATOMA [None]
